FAERS Safety Report 6306932-1 (Version None)
Quarter: 2009Q3

REPORT INFORMATION
  Report Type: 
  Country: None (occurrence: None)
  Receive Date: 20090811
  Receipt Date: 20090811
  Transmission Date: 20100115
  Serious: Yes (Hospitalization)
  Sender: FDA-Public Use
  Company Number: None

PATIENT
  Age: 39 Year
  Sex: Female
  Weight: 104.3273 kg

DRUGS (1)
  1. CELEBREX [Suspect]
     Indication: PAIN
     Dosage: 200MG EVERY 12 HOURS PO
     Route: 048
     Dates: start: 20090803, end: 20090804

REACTIONS (8)
  - ASTHMA [None]
  - CHEST PAIN [None]
  - DIZZINESS [None]
  - NAUSEA [None]
  - PALPITATIONS [None]
  - RASH [None]
  - URTICARIA [None]
  - VOMITING [None]
